FAERS Safety Report 18702713 (Version 2)
Quarter: 2021Q1

REPORT INFORMATION
  Report Type: Spontaneous
  Country: US (occurrence: US)
  Receive Date: 20210105
  Receipt Date: 20210204
  Transmission Date: 20210419
  Serious: No
  Sender: FDA-Public Use
  Company Number: US-VERTEX PHARMACEUTICALS-2020-025509

PATIENT
  Age: 12 Year
  Sex: Female
  Weight: 40 kg

DRUGS (10)
  1. SODIUM CHLORIDE. [Concomitant]
     Active Substance: SODIUM CHLORIDE
  2. FLONASE ALLERGY RELIEF [Concomitant]
     Active Substance: FLUTICASONE PROPIONATE
  3. PULMOZYME [Concomitant]
     Active Substance: DORNASE ALFA
  4. LEVALBUTEROL [LEVOSALBUTAMOL] [Concomitant]
     Active Substance: LEVALBUTEROL
  5. SYMBICORT [Concomitant]
     Active Substance: BUDESONIDE\FORMOTEROL FUMARATE DIHYDRATE
  6. AZITHROMYCIN ANHYDROUS. [Concomitant]
     Active Substance: AZITHROMYCIN ANHYDROUS
  7. MELATONIN [Concomitant]
     Active Substance: MELATONIN
  8. CREON [Concomitant]
     Active Substance: PANCRELIPASE AMYLASE\PANCRELIPASE LIPASE\PANCRELIPASE PROTEASE
     Dosage: 12K?38K?60 CAPSULE
  9. VITAMIN D [COLECALCIFEROL] [Concomitant]
     Active Substance: CHOLECALCIFEROL
     Dosage: 10000 UNIT CAPSULE
  10. TRIKAFTA [Suspect]
     Active Substance: ELEXACAFTOR\IVACAFTOR\TEZACAFTOR
     Indication: CYSTIC FIBROSIS
     Dosage: 2 TABS (100 MG ELEXACAFTOR/50 MG TEZACAFTOR/75 MG IVACAFTOR) AM AND 1 TAB (150 MG IVACAFTOR) PM
     Route: 048
     Dates: start: 20201130

REACTIONS (1)
  - Oral herpes [Recovered/Resolved]

NARRATIVE: CASE EVENT DATE: 20201202
